FAERS Safety Report 5431409-5 (Version None)
Quarter: 2007Q3

REPORT INFORMATION
  Report Type: 
  Country: None (occurrence: None)
  Receive Date: 20070830
  Receipt Date: 20070530
  Transmission Date: 20080115
  Serious: No
  Sender: FDA-Public Use
  Company Number: A0653760A

PATIENT
  Sex: Female

DRUGS (1)
  1. BUPROPION HCL [Suspect]
     Indication: DRUG USE FOR UNKNOWN INDICATION

REACTIONS (4)
  - ATTENTION DEFICIT/HYPERACTIVITY DISORDER [None]
  - DISTRACTIBILITY [None]
  - DYSPHEMIA [None]
  - LOGORRHOEA [None]
